FAERS Safety Report 15219412 (Version 2)
Quarter: 2018Q3

REPORT INFORMATION
  Report Type: Spontaneous
  Country: CA (occurrence: CA)
  Receive Date: 20180731
  Receipt Date: 20180815
  Transmission Date: 20181010
  Serious: Yes (Other)
  Sender: FDA-Public Use
  Company Number: CA-ROCHE-2161679

PATIENT
  Age: 27 Year
  Sex: Female

DRUGS (9)
  1. BETADERM (CANADA) [Concomitant]
     Indication: CHRONIC SPONTANEOUS URTICARIA
     Dosage: 1 DF, TID
     Route: 061
     Dates: start: 201608
  2. XOLAIR [Suspect]
     Active Substance: OMALIZUMAB
     Indication: CHRONIC SPONTANEOUS URTICARIA
     Dosage: 300 MG, EVERY 4 WEEKS
     Route: 058
     Dates: start: 20180228
  3. XOLAIR [Suspect]
     Active Substance: OMALIZUMAB
     Dosage: 300 MG, EVERY 4 WEEKS
     Route: 058
     Dates: start: 20180605
  4. REACTINE (CANADA) [Concomitant]
     Active Substance: CETIRIZINE HYDROCHLORIDE
     Route: 048
  5. PROTOPIC [Concomitant]
     Active Substance: TACROLIMUS
     Dosage: 1 DF, BID
     Route: 061
     Dates: start: 20170908
  6. ELOCOM [Concomitant]
     Active Substance: MOMETASONE FUROATE
     Dosage: 1 DF, PRN
     Route: 061
     Dates: start: 20170908
  7. REACTINE (CANADA) [Concomitant]
     Active Substance: CETIRIZINE HYDROCHLORIDE
     Indication: CHRONIC SPONTANEOUS URTICARIA
     Dosage: 1 DF, BID
     Route: 048
     Dates: start: 201705
  8. DOXEPIN [Concomitant]
     Active Substance: DOXEPIN
     Dosage: 1 DF, UNK
     Route: 048
  9. XOLAIR [Suspect]
     Active Substance: OMALIZUMAB
     Dosage: 300 MG, EVERY 4 WEEKS
     Route: 058
     Dates: start: 20180705

REACTIONS (5)
  - Urticaria [Recovered/Resolved]
  - Dizziness [Unknown]
  - Fear of injection [Unknown]
  - Lower respiratory tract infection [Recovered/Resolved]
  - Hyperventilation [Unknown]

NARRATIVE: CASE EVENT DATE: 20180705
